FAERS Safety Report 4544217-4 (Version None)
Quarter: 2005Q1

REPORT INFORMATION
  Report Type: 
  Country: None (occurrence: None)
  Receive Date: 20050103
  Receipt Date: 20050103
  Transmission Date: 20050727
  Serious: Yes (Other)
  Sender: FDA-Public Use
  Company Number: None

PATIENT
  Age: 42 Year
  Sex: Female
  Weight: 61.2356 kg

DRUGS (1)
  1. ALPRAZOLAM [Suspect]
     Indication: PANIC DISORDER
     Dosage: 1 TABLET   EVERY 4 HOURS    ORAL
     Route: 048
     Dates: start: 20040915, end: 20041231

REACTIONS (3)
  - DEPRESSION [None]
  - PANIC DISORDER [None]
  - PHARMACEUTICAL PRODUCT COMPLAINT [None]
